FAERS Safety Report 7383556-9 (Version None)
Quarter: 2011Q1

REPORT INFORMATION
  Report Type: 
  Country: None (occurrence: None)
  Receive Date: 20110325
  Receipt Date: 20110325
  Transmission Date: 20110831
  Serious: Yes (Other)
  Sender: FDA-Public Use
  Company Number: None

PATIENT
  Age: 52 Year
  Sex: Female
  Weight: 71.2147 kg

DRUGS (2)
  1. BUDEPRION XL 150 MG TEVA'S [Suspect]
     Indication: MIGRAINE
     Dosage: 2X DAILY PO
     Route: 048
     Dates: start: 20110101, end: 20110201
  2. JINTELI 1MG/5MCG TEVA [Suspect]
     Indication: MENOPAUSAL SYMPTOMS
     Dosage: 1 DAILY PO
     Route: 048
     Dates: start: 20110316, end: 20110325

REACTIONS (4)
  - MOOD SWINGS [None]
  - PRODUCT SUBSTITUTION ISSUE [None]
  - HOT FLUSH [None]
  - SLEEP DISORDER [None]
